FAERS Safety Report 7936139 (Version 2)
Quarter: 2013Q2

REPORT INFORMATION
  Report Type: Spontaneous
  Country: US (occurrence: US)
  Receive Date: 20110509
  Receipt Date: 20130502
  Transmission Date: 20140414
  Serious: No
  Sender: FDA-Public Use
  Company Number: US-ALEXION-A201001033

PATIENT
  Age: 57 Year
  Sex: Female
  Weight: 53.97 kg

DRUGS (17)
  1. SOLIRIS 300MG [Suspect]
     Indication: PAROXYSMAL NOCTURNAL HAEMOGLOBINURIA
     Dosage: 600 MG, QW
     Dates: start: 20100208, end: 201003
  2. SOLIRIS 300MG [Suspect]
     Dosage: 900 MG, Q2W
     Route: 042
     Dates: start: 2010
  3. COUMADIN /00014802/ [Suspect]
     Indication: ANTICOAGULANT THERAPY
     Dosage: 7 MG, UNK
     Dates: end: 20110110
  4. FOLIC ACID [Concomitant]
     Dosage: 1 MG, BID
  5. CALCIUM [Concomitant]
     Indication: OSTEOPOROSIS
     Dosage: UNK
  6. FOSAMAX [Concomitant]
     Indication: OSTEOPOROSIS
     Dosage: 70 MG, QW EVERY SATURDAY
  7. LOVENOX                            /00889602/ [Concomitant]
     Indication: ANTICOAGULANT THERAPY
  8. IMITREX [Concomitant]
     Indication: MIGRAINE
     Dosage: 15 MG, PRN
  9. CALCIUM + VITAMIN D [Concomitant]
     Dosage: 1 DF, QD 600/400
  10. VITAMIN D [Concomitant]
     Dosage: 1 DF, QD 2000 IU
  11. VITAMIN C [Concomitant]
     Dosage: 500 MG, QD
  12. IRON [Concomitant]
     Dosage: 325 TABLET, TID
  13. FISH OIL [Concomitant]
     Dosage: 1000 MG, QD
  14. VITAMIN B [Concomitant]
     Dosage: 1000 MG, QD
  15. CIPRO [Concomitant]
  16. SOLUMEDROL [Concomitant]
     Dosage: 1 G, UNK
  17. FERRITIN [Concomitant]
     Dosage: 1 DF, QD 1 TABLET

REACTIONS (17)
  - Lethargy [Not Recovered/Not Resolved]
  - Blood calcium increased [Not Recovered/Not Resolved]
  - International normalised ratio decreased [Not Recovered/Not Resolved]
  - Osteoporosis [Not Recovered/Not Resolved]
  - Blood parathyroid hormone decreased [Unknown]
  - Blood iron decreased [Recovering/Resolving]
  - Haemoglobin abnormal [Unknown]
  - Anaemia macrocytic [Unknown]
  - Paroxysmal nocturnal haemoglobinuria [Unknown]
  - Condition aggravated [Unknown]
  - Restless legs syndrome [Recovered/Resolved]
  - Central venous catheterisation [Recovered/Resolved]
  - Haemolysis [Unknown]
  - Fatigue [Not Recovered/Not Resolved]
  - Anaemia [Unknown]
  - Leukopenia [Unknown]
  - Lymphopenia [Unknown]
